FAERS Safety Report 5286749-X (Version None)
Quarter: 2007Q1

REPORT INFORMATION
  Report Type: 
  Country: None (occurrence: None)
  Receive Date: 20070116
  Receipt Date: 20061114
  Transmission Date: 20070707
  Serious: No
  Sender: FDA-Public Use
  Company Number: 2006SP004040

PATIENT
  Age: 47 Year
  Sex: Female
  Weight: 61.2356 kg

DRUGS (2)
  1. LUNESTA [Suspect]
     Indication: SLEEP DISORDER
     Dosage: 3 MG; ORAL
     Route: 048
     Dates: start: 20060101
  2. AMBIEN [Suspect]
     Dosage: ORAL
     Route: 048

REACTIONS (2)
  - DRUG INEFFECTIVE [None]
  - INSOMNIA [None]
